FAERS Safety Report 10348104 (Version 1)
Quarter: 2014Q3

REPORT INFORMATION
  Report Type: Spontaneous
  Country: GR (occurrence: GR)
  Receive Date: 20140729
  Receipt Date: 20140729
  Transmission Date: 20150326
  Serious: Yes (Hospitalization)
  Sender: FDA-Public Use
  Company Number: PHHY2014GR091327

PATIENT
  Age: 60 Year
  Sex: Male

DRUGS (4)
  1. AMOXICILLIN+CLAVULANATE [Suspect]
     Active Substance: AMOXICILLIN\CLAVULANATE POTASSIUM
     Indication: RESPIRATORY DISORDER
  2. OMEGA-3 FATTY ACIDS [Suspect]
     Active Substance: OMEGA-3 FATTY ACIDS
     Indication: EXOSTOSIS
  3. LINOLENIC ACID [Suspect]
     Active Substance: LINOLENIC ACID
  4. PREDNISONE. [Suspect]
     Active Substance: PREDNISONE
     Indication: RESPIRATORY DISORDER

REACTIONS (9)
  - Hiatus hernia [Unknown]
  - Duodenal ulcer [Recovered/Resolved]
  - Microcytosis [Unknown]
  - Anaemia [Unknown]
  - Anisocytosis [Unknown]
  - Oesophagitis [Unknown]
  - Gastrointestinal haemorrhage [Unknown]
  - Hypochromasia [Unknown]
  - Melaena [Unknown]
